FAERS Safety Report 23201734 (Version 2)
Quarter: 2023Q4

REPORT INFORMATION
  Report Type: Spontaneous
  Country: ES (occurrence: ES)
  Receive Date: 20231120
  Receipt Date: 20231127
  Transmission Date: 20240110
  Serious: Yes (Other)
  Sender: FDA-Public Use
  Company Number: ES-NOVPHSZ-PHHY2018ES005785

PATIENT
  Age: 21 Year
  Sex: Female

DRUGS (11)
  1. CYCLOSPORINE [Suspect]
     Active Substance: CYCLOSPORINE
     Indication: Prophylaxis
     Route: 065
  2. CYCLOPHOSPHAMIDE [Suspect]
     Active Substance: CYCLOPHOSPHAMIDE
     Indication: Stem cell transplant
     Dosage: 60 MG/KG, ON DAYS -6 AND -5
     Route: 065
  3. CYTARABINE [Suspect]
     Active Substance: CYTARABINE
     Indication: Acute lymphocytic leukaemia
     Dosage: TRIPLE INTRATHECAL THERAPY ON DAY 7
     Route: 037
  4. CYTARABINE [Suspect]
     Active Substance: CYTARABINE
     Dosage: 2 G/M2, CYCLIC, 1 TO 5
     Route: 065
  5. FLUDARABINE PHOSPHATE [Suspect]
     Active Substance: FLUDARABINE PHOSPHATE
     Indication: Acute lymphocytic leukaemia
     Dosage: 30 MG/M2, CYCLIC, DAYS 1 TO 5
     Route: 065
  6. GRANULOCYTE COLONY-STIMULATING FACTOR NOS [Suspect]
     Active Substance: GRANULOCYTE COLONY-STIMULATING FACTOR NOS
     Indication: Acute lymphocytic leukaemia
     Dosage: 1 DF, CYCLIC, DAYS 1 TO 5
     Route: 065
  7. HYDROCORTISONE [Suspect]
     Active Substance: HYDROCORTISONE
     Indication: Acute lymphocytic leukaemia
     Dosage: TRIPLE INTRATHECAL THERAPY ON DAY 7
     Route: 037
  8. IDARUBICIN HYDROCHLORIDE [Suspect]
     Active Substance: IDARUBICIN HYDROCHLORIDE
     Indication: Acute lymphocytic leukaemia
     Dosage: 12 MG/M2, CYCLIC DAYS 1, 3 AND 5
     Route: 065
  9. METHOTREXATE SODIUM [Suspect]
     Active Substance: METHOTREXATE SODIUM
     Indication: Acute lymphocytic leukaemia
     Dosage: 1 DF, UNK, DAYS -7 AND -3
     Route: 037
  10. METHOTREXATE SODIUM [Suspect]
     Active Substance: METHOTREXATE SODIUM
     Indication: Prophylaxis
     Dosage: UNK, CYCLIC (TRIPLE INTRATHECAL THERAPY ON DAY 7, CYCLIC)
     Route: 037
  11. METHOTREXATE SODIUM [Suspect]
     Active Substance: METHOTREXATE SODIUM
     Dosage: DAYS +1, +3, +6 AND +11
     Route: 065

REACTIONS (5)
  - Neoplasm recurrence [Recovered/Resolved]
  - Subclavian vein thrombosis [Unknown]
  - Pulmonary embolism [Unknown]
  - Cytomegalovirus infection reactivation [Unknown]
  - Bronchopulmonary aspergillosis [Unknown]

NARRATIVE: CASE EVENT DATE: 20150301
